FAERS Safety Report 19593336 (Version 1)
Quarter: 2021Q3

REPORT INFORMATION
  Report Type: Spontaneous
  Country: US (occurrence: US)
  Receive Date: 20210722
  Receipt Date: 20210722
  Transmission Date: 20211014
  Serious: Yes (Other)
  Sender: FDA-Public Use
  Company Number: US-STRIDES ARCOLAB LIMITED-2021SP002043

PATIENT
  Age: 67 Year
  Sex: Female

DRUGS (14)
  1. FLUOXETINE [Concomitant]
     Active Substance: FLUOXETINE HYDROCHLORIDE
     Indication: DYSKINESIA
     Dosage: 50 MILLIGRAM
     Route: 065
  2. TRAZODONE [Concomitant]
     Active Substance: TRAZODONE HYDROCHLORIDE
     Indication: DYSKINESIA
     Dosage: 100 MILLIGRAM, EVERY 24 HOURS, NIGHTLY
     Route: 065
  3. SINEMET [Suspect]
     Active Substance: CARBIDOPA\LEVODOPA
     Indication: PARKINSONIAN GAIT
     Dosage: UNK
     Route: 065
     Dates: start: 201501
  4. PRIMIDONE. [Suspect]
     Active Substance: PRIMIDONE
     Indication: PARKINSONIAN GAIT
     Dosage: UNK
     Route: 065
     Dates: start: 201501
  5. TETRABENAZINE. [Concomitant]
     Active Substance: TETRABENAZINE
     Indication: TARDIVE DYSKINESIA
     Dosage: 12.5 MILLIGRAM, EVERY 8 HOURS
     Route: 065
     Dates: start: 201112
  6. AMANTADINE HYDROCHLORIDE. [Suspect]
     Active Substance: AMANTADINE HYDROCHLORIDE
     Indication: PARKINSONIAN GAIT
     Dosage: UNK
     Route: 065
     Dates: start: 201501
  7. QUETIAPINE. [Concomitant]
     Active Substance: QUETIAPINE
     Indication: DYSKINESIA
     Dosage: 50 MILLIGRAM
     Route: 065
     Dates: start: 201101
  8. QUETIAPINE. [Concomitant]
     Active Substance: QUETIAPINE
     Dosage: 200 MILLIGRAM
     Route: 065
     Dates: start: 2011
  9. PROPRANOLOL [Suspect]
     Active Substance: PROPRANOLOL HYDROCHLORIDE
     Dosage: UPTO 20 MILLIGRAM, TID
     Route: 065
     Dates: start: 201501
  10. QUETIAPINE. [Concomitant]
     Active Substance: QUETIAPINE
     Dosage: 100 MILLIGRAM
     Route: 065
  11. PRAMIPEXOLE DIHYDROCHLORIDE. [Suspect]
     Active Substance: PRAMIPEXOLE DIHYDROCHLORIDE
     Indication: PARKINSONIAN GAIT
     Dosage: UNK
     Route: 065
     Dates: start: 201501
  12. TETRABENAZINE. [Concomitant]
     Active Substance: TETRABENAZINE
     Dosage: 25 MILLIGRAM, TID
     Route: 065
     Dates: start: 201501
  13. PROPRANOLOL [Suspect]
     Active Substance: PROPRANOLOL HYDROCHLORIDE
     Indication: PARKINSONIAN GAIT
     Dosage: 10 MILLIGRAM, BID
     Route: 065
     Dates: start: 201307
  14. TETRABENAZINE. [Concomitant]
     Active Substance: TETRABENAZINE
     Indication: DYSKINESIA
     Dosage: 12.5 MILLIGRAM, EVERY 12 HRS
     Route: 065
     Dates: start: 201106, end: 2011

REACTIONS (1)
  - Drug ineffective [Unknown]
